FAERS Safety Report 23156606 (Version 1)
Quarter: 2023Q4

REPORT INFORMATION
  Report Type: Spontaneous
  Country: US (occurrence: US)
  Receive Date: 20231107
  Receipt Date: 20231107
  Transmission Date: 20240110
  Serious: Yes (Other)
  Sender: FDA-Public Use
  Company Number: US-AUROBINDO-AUR-APL-2023-067440

PATIENT
  Age: 75 Year
  Sex: Female

DRUGS (3)
  1. AMANTADINE [Suspect]
     Active Substance: AMANTADINE
     Indication: Parkinson^s disease
     Dosage: 100 MILLIGRAM, 3 TIMES A DAY
     Route: 065
  2. AMITRIPTYLINE [Concomitant]
     Active Substance: AMITRIPTYLINE
     Indication: Product used for unknown indication
     Dosage: UNK
     Route: 065
  3. LEVODOPA [Concomitant]
     Active Substance: LEVODOPA
     Indication: Parkinson^s disease
     Dosage: 600 MILLIGRAM, ONCE A DAY
     Route: 065

REACTIONS (8)
  - Balance disorder [Recovered/Resolved]
  - Dysarthria [Unknown]
  - Dysphemia [Unknown]
  - Dystonia [Unknown]
  - Fall [Unknown]
  - Hallucination, visual [Recovered/Resolved]
  - Muscle twitching [Unknown]
  - Myoclonus [Recovered/Resolved]
